FAERS Safety Report 4862576-X (Version None)
Quarter: 2005Q4

REPORT INFORMATION
  Report Type: 
  Country: None (occurrence: None)
  Receive Date: 20051221
  Receipt Date: 20051219
  Transmission Date: 20060501
  Serious: Yes (Hospitalization)
  Sender: FDA-Public Use
  Company Number: NL-GLAXOSMITHKLINE-B0404366A

PATIENT
  Age: 21 Year
  Sex: Male

DRUGS (3)
  1. LAMIVUDINE [Suspect]
     Indication: HEPATITIS B
     Dosage: 100MG PER DAY
     Route: 048
     Dates: start: 20010301
  2. INTRON A [Concomitant]
     Indication: HEPATITIS B
     Dates: start: 20010301
  3. RISPERDAL [Concomitant]
     Dosage: .5MG PER DAY
     Dates: start: 20020101, end: 20020801

REACTIONS (10)
  - ALOPECIA [None]
  - ANOREXIA [None]
  - CHILLS [None]
  - CROHN'S DISEASE [None]
  - DEPRESSION [None]
  - DIARRHOEA [None]
  - HEADACHE [None]
  - INFLUENZA LIKE ILLNESS [None]
  - LIBIDO DECREASED [None]
  - MYALGIA [None]
